FAERS Safety Report 11368563 (Version 1)
Quarter: 2015Q3

REPORT INFORMATION
  Report Type: Spontaneous
  Country: US (occurrence: US)
  Receive Date: 20150812
  Receipt Date: 20150812
  Transmission Date: 20151125
  Serious: Yes (Hospitalization)
  Sender: FDA-Public Use
  Company Number: GXBR2015US001804

PATIENT
  Age: 14 Year
  Sex: Female
  Weight: 57.6 kg

DRUGS (1)
  1. LORAZEPAM ACTAVIS 1MG [Suspect]
     Active Substance: LORAZEPAM
     Indication: PRODUCT USED FOR UNKNOWN INDICATION
     Dosage: PATIENT TOOK APPROX. 50 1MG TABLETS
     Route: 048
     Dates: start: 20150802, end: 20150802

REACTIONS (5)
  - Speech disorder [Unknown]
  - Hallucination [Unknown]
  - Intentional overdose [Unknown]
  - Suicide attempt [Unknown]
  - Abasia [Unknown]

NARRATIVE: CASE EVENT DATE: 20150802
